FAERS Safety Report 4348668-2 (Version None)
Quarter: 2004Q1

REPORT INFORMATION
  Report Type: 
  Country: None (occurrence: None)
  Receive Date: 20040325
  Receipt Date: 20031201
  Transmission Date: 20041129
  Serious: No
  Sender: FDA-Public Use
  Company Number: USA031049051

PATIENT
  Age: 52 Year
  Sex: Female

DRUGS (16)
  1. FORTEO [Suspect]
     Indication: OSTEOPOROSIS
     Dates: start: 20030922
  2. ATENOLOL [Concomitant]
  3. ESTRADIOL [Concomitant]
  4. ETODOLAC [Concomitant]
  5. HALCION [Concomitant]
  6. ZANAFLEX (TIZADNIDINE HYDROCHLORIDE) [Concomitant]
  7. QUININE SULFATE [Concomitant]
  8. OXYCONTIN [Concomitant]
  9. ROXICODONE (OXCODONE HYDROCHLORIDE) [Concomitant]
  10. PREVACID [Concomitant]
  11. WELLBUTRIN (BUPRINION HYDROCHLORIDE) [Concomitant]
  12. PROVIGIL [Concomitant]
  13. ATROVENT [Concomitant]
  14. PAMIDRONATE DISODIUM [Concomitant]
  15. MULTIVITAMIN [Concomitant]
  16. MINERALS NOS [Concomitant]

REACTIONS (1)
  - INJECTION SITE HAEMORRHAGE [None]
